FAERS Safety Report 5581107-2 (Version None)
Quarter: 2007Q4

REPORT INFORMATION
  Report Type: 
  Country: None (occurrence: None)
  Receive Date: 20071228
  Receipt Date: 20071219
  Transmission Date: 20080405
  Serious: No
  Sender: FDA-Public Use
  Company Number: 20074447

PATIENT
  Age: 14 Year
  Sex: Male

DRUGS (1)
  1. LIORESAL [Suspect]
     Indication: MUSCLE SPASTICITY
     Dosage: UNK MCG DAILY INTRATHECAL
     Route: 037

REACTIONS (10)
  - BLOOD PRESSURE INCREASED [None]
  - CSF CULTURE POSITIVE [None]
  - DEVICE RELATED INFECTION [None]
  - DRUG WITHDRAWAL SYNDROME [None]
  - HYPERHIDROSIS [None]
  - HYPERTONIA [None]
  - MENINGITIS [None]
  - PROTEUS INFECTION [None]
  - PSEUDOMONAS INFECTION [None]
  - TACHYCARDIA [None]
